FAERS Safety Report 11744708 (Version 1)
Quarter: 2015Q4

REPORT INFORMATION
  Report Type: Spontaneous
  Country: US (occurrence: US)
  Receive Date: 20151116
  Receipt Date: 20151116
  Transmission Date: 20160304
  Serious: Yes (Hospitalization)
  Sender: FDA-Public Use
  Company Number: US-DSJP-DSU-2015-118055

PATIENT

DRUGS (2)
  1. BENICAR HCT [Suspect]
     Active Substance: HYDROCHLOROTHIAZIDE\OLMESARTAN MEDOXOMIL
     Indication: HYPERTENSION
     Dosage: 40/25 MG, QD
     Dates: start: 2005, end: 2011
  2. BENICAR [Suspect]
     Active Substance: OLMESARTAN MEDOXOMIL
     Indication: PRODUCT USED FOR UNKNOWN INDICATION
     Dosage: UNK

REACTIONS (13)
  - Malabsorption [Unknown]
  - Syncope [Unknown]
  - Cholecystitis infective [Unknown]
  - Hepatic enzyme increased [Unknown]
  - Barrett^s oesophagus [Unknown]
  - Diarrhoea infectious [Unknown]
  - Acute kidney injury [Unknown]
  - Haemorrhoids [Unknown]
  - Rectal haemorrhage [Unknown]
  - Coeliac disease [Unknown]
  - Abdominal distension [Unknown]
  - Cholelithiasis [Unknown]
  - Duodenitis [Unknown]
